FAERS Safety Report 5023201-0 (Version None)
Quarter: 2006Q2

REPORT INFORMATION
  Report Type: 
  Country: None (occurrence: None)
  Receive Date: 20060606
  Receipt Date: 20060524
  Transmission Date: 20061013
  Serious: Yes (Hospitalization)
  Sender: FDA-Public Use
  Company Number: 2005BI007990

PATIENT
  Age: 47 Year
  Sex: Female

DRUGS (10)
  1. AVONEX [Suspect]
     Indication: MULTIPLE SCLEROSIS
     Dosage: 30 UG;QW;IM
     Route: 030
     Dates: start: 20020501
  2. AVONEX [Suspect]
     Indication: MULTIPLE SCLEROSIS
     Dosage: 30 UG;QW;IM
     Route: 030
     Dates: end: 20050402
  3. VERAPAMIL [Concomitant]
  4. FEOSOL [Concomitant]
  5. NEURONTIN [Concomitant]
  6. PROVIGIL [Concomitant]
  7. PREVACID [Concomitant]
  8. NITROQUICK [Concomitant]
  9. ASPIRIN [Concomitant]
  10. EXTRA STRENGTH TYLENOL [Concomitant]

REACTIONS (5)
  - APHONIA [None]
  - DYSPNOEA [None]
  - HEADACHE [None]
  - SPINAL COLUMN STENOSIS [None]
  - SYNCOPE [None]
